FAERS Safety Report 25415437 (Version 1)
Quarter: 2025Q2

REPORT INFORMATION
  Report Type: Spontaneous
  Country: US (occurrence: US)
  Receive Date: 20250610
  Receipt Date: 20250610
  Transmission Date: 20250716
  Serious: Yes (Life-Threatening, Hospitalization, Other)
  Sender: AMGEN
  Company Number: US-AMGEN-USASP2025110055

PATIENT
  Age: 26 Year
  Sex: Female

DRUGS (3)
  1. RITUXIMAB [Suspect]
     Active Substance: RITUXIMAB
     Indication: Interstitial lung disease
     Route: 065
  2. RITUXIMAB [Suspect]
     Active Substance: RITUXIMAB
     Indication: Systemic scleroderma
  3. PREDNISONE [Suspect]
     Active Substance: PREDNISONE
     Indication: Connective tissue disease-associated interstitial lung disease
     Route: 065

REACTIONS (11)
  - Right ventricular failure [Unknown]
  - Respiratory failure [Unknown]
  - Interstitial lung disease [Unknown]
  - Organising pneumonia [Unknown]
  - Connective tissue disease-associated interstitial lung disease [Unknown]
  - Pulmonary hypertension [Unknown]
  - Premature delivery [Unknown]
  - Eclampsia [Unknown]
  - Gestational hypertension [Unknown]
  - Maternal exposure during pregnancy [Unknown]
  - Off label use [Unknown]
